FAERS Safety Report 19164943 (Version 1)
Quarter: 2021Q2

REPORT INFORMATION
  Report Type: Spontaneous
  Country: SE (occurrence: SE)
  Receive Date: 20210421
  Receipt Date: 20210421
  Transmission Date: 20210717
  Serious: Yes (Other)
  Sender: FDA-Public Use
  Company Number: SE-TEVA-2021-SE-1902063

PATIENT
  Age: 53 Year
  Sex: Female

DRUGS (18)
  1. FORLAX [Concomitant]
     Active Substance: POLYETHYLENE GLYCOL 4000
  2. CILAXORAL [Concomitant]
     Active Substance: SODIUM PICOSULFATE
  3. ESCITALOPRAM [Concomitant]
     Active Substance: ESCITALOPRAM OXALATE
  4. DIMETIKON [Concomitant]
  5. LITHIONIT [Concomitant]
     Active Substance: LITHIUM SULFATE
  6. PROPAVAN [Concomitant]
     Active Substance: PROPIOMAZINE
  7. ZOPICLONE [Concomitant]
     Active Substance: ZOPICLONE
  8. BETOLVIDON [Concomitant]
     Active Substance: CYANOCOBALAMIN
  9. REPLENS [Concomitant]
     Active Substance: CARBOMER 934\GLYCERIN\METHYLPARABEN\PROPYLPARABEN\SODIUM HYDROXIDE
  10. HYDROXOCOBALAMIN [Concomitant]
     Active Substance: HYDROXOCOBALAMIN
  11. LACTULOSE. [Concomitant]
     Active Substance: LACTULOSE
  12. LERGIGAN [Concomitant]
  13. ALVEDON [Concomitant]
     Active Substance: ACETAMINOPHEN
  14. PARAFLEX [Concomitant]
     Active Substance: CHLORZOXAZONE
  15. OLANZAPINE TEVA 10 MG MUNSONDERFALLANDE TABLETT [Suspect]
     Active Substance: OLANZAPINE
     Indication: BIPOLAR DISORDER
     Dosage: 10 MG
     Route: 048
     Dates: start: 20210128, end: 20210317
  16. XYLOCAIN [Concomitant]
  17. MINIDERM [Concomitant]
  18. XYLOPROCT [Concomitant]

REACTIONS (6)
  - Arthralgia [Unknown]
  - Jaundice [Unknown]
  - Swelling [Unknown]
  - Dental paraesthesia [Unknown]
  - Blister [Unknown]
  - Myalgia [Unknown]

NARRATIVE: CASE EVENT DATE: 202103
